FAERS Safety Report 7579949 (Version 9)
Quarter: 2013Q2

REPORT INFORMATION
  Report Type: Spontaneous
  Country: CA (occurrence: CA)
  Receive Date: 20100910
  Receipt Date: 20130409
  Transmission Date: 20140414
  Serious: Yes (Death, Hospitalization, Other)
  Sender: FDA-Public Use
  Company Number: PHHY2010CA58942

PATIENT
  Age: 64 Year
  Sex: Male

DRUGS (2)
  1. SANDOSTATIN LAR [Suspect]
     Indication: NEUROENDOCRINE CARCINOMA
     Dosage: 20 MG EVERY 4 WEEK
     Route: 030
     Dates: start: 20091028
  2. SANDOSTATIN LAR [Suspect]
     Dosage: 30 MG EVERY 4 WEEKS
     Route: 030
     Dates: end: 20130312

REACTIONS (9)
  - Death [Fatal]
  - Infection [Unknown]
  - Jaundice [Unknown]
  - Diabetes mellitus [Unknown]
  - Constipation [Unknown]
  - Weight decreased [Unknown]
  - Decreased appetite [Unknown]
  - Hypoglycaemia [Unknown]
  - Abdominal pain [Unknown]
